FAERS Safety Report 4883379-6 (Version None)
Quarter: 2006Q1

REPORT INFORMATION
  Report Type: 
  Country: None (occurrence: None)
  Receive Date: 20060113
  Receipt Date: 20051227
  Transmission Date: 20060701
  Serious: Yes (Hospitalization, Other)
  Sender: FDA-Public Use
  Company Number: USA0510110239

PATIENT
  Age: 87 Year
  Sex: Female

DRUGS (12)
  1. FORTEO [Suspect]
     Indication: OSTEOPOROSIS
     Dosage: 20 UG; DAILY (1/D),
     Dates: start: 20050920
  2. FORTEO [Suspect]
  3. FORTEO PEN, 250MCG/ML (3ML) (FORTEO PEN 250MCG/ML (3ML)) PEN, DISPOSAB [Concomitant]
  4. FORTEO [Concomitant]
  5. ASA (ASPIRIN (ACETYLSALICYLIC ACID) [Concomitant]
  6. ATENOLOL [Concomitant]
  7. ACTONEL /USA/ (RISEDRONATE SODIUM) [Concomitant]
  8. ZANTAC [Concomitant]
  9. OSCAL (CALCIUM CARBONATE) [Concomitant]
  10. MULTIVITAMINS (ASCORBIC ACID, ERGOCALCIFEROL, FOLIC ACID, NICOTINAMIDE [Concomitant]
  11. MOTRIN [Concomitant]
  12. VALIUM /NET/ (DIAZEPAM) [Concomitant]

REACTIONS (6)
  - ARTHRALGIA [None]
  - BONE PAIN [None]
  - CARDIAC FAILURE CONGESTIVE [None]
  - DIFFICULTY IN WALKING [None]
  - PHARMACEUTICAL PRODUCT COMPLAINT [None]
  - SPINAL FRACTURE [None]
